FAERS Safety Report 6472702-7 (Version None)
Quarter: 2009Q4

REPORT INFORMATION
  Report Type: 
  Country: None (occurrence: None)
  Receive Date: 20091203
  Receipt Date: 20091123
  Transmission Date: 20100525
  Serious: Yes (Hospitalization)
  Sender: FDA-Public Use
  Company Number: US-BAXTER-2009BH017943

PATIENT
  Age: 66 Year
  Sex: Male

DRUGS (1)
  1. DIANEAL [Suspect]
     Indication: PERITONEAL DIALYSIS
     Route: 033
     Dates: start: 20090201, end: 20090319

REACTIONS (3)
  - CATHETER SITE DISCHARGE [None]
  - CATHETER SITE ERYTHEMA [None]
  - CATHETER SITE INFECTION [None]
